FAERS Safety Report 19805625 (Version 11)
Quarter: 2022Q2

REPORT INFORMATION
  Report Type: Report from Study
  Country: KR (occurrence: KR)
  Receive Date: 20210908
  Receipt Date: 20220519
  Transmission Date: 20220721
  Serious: Yes (Hospitalization)
  Sender: FDA-Public Use
  Company Number: KR-EXELIXIS-XL18421043863

PATIENT

DRUGS (39)
  1. CABOZANTINIB [Suspect]
     Active Substance: CABOZANTINIB
     Indication: Non-small cell lung cancer metastatic
     Dosage: 40 MG, QD
     Route: 048
     Dates: start: 20210818
  2. ATEZOLIZUMAB [Suspect]
     Active Substance: ATEZOLIZUMAB
     Indication: Non-small cell lung cancer metastatic
     Dosage: 1200 MG, Q3WEEKS
     Route: 042
     Dates: start: 20210818
  3. ATEZOLIZUMAB [Suspect]
     Active Substance: ATEZOLIZUMAB
     Dosage: 1200 MG, Q3WEEKS
     Route: 042
     Dates: start: 20210917
  4. ACECLOFENAC [Concomitant]
     Active Substance: ACECLOFENAC
     Indication: Osteoarthritis
     Dosage: 100 MG, BID
     Route: 048
     Dates: start: 202012, end: 20210829
  5. ACECLOFENAC [Concomitant]
     Active Substance: ACECLOFENAC
     Dosage: 100 MG, BID
     Dates: start: 20210902, end: 20210906
  6. TRIMEBUTINE MALEATE [Concomitant]
     Active Substance: TRIMEBUTINE MALEATE
     Indication: Prophylaxis
     Dosage: 150 MG, BID
     Route: 048
     Dates: start: 202012, end: 20210829
  7. TRIMEBUTINE MALEATE [Concomitant]
     Active Substance: TRIMEBUTINE MALEATE
     Dosage: 150 MG, BID
     Route: 048
     Dates: start: 20210902, end: 20210909
  8. LAYLA [Concomitant]
     Indication: Osteoarthritis
     Dosage: 1 {DF}, BID
     Route: 048
     Dates: start: 202012, end: 20210829
  9. LAYLA [Concomitant]
     Dosage: 1 {DF}, BID
     Route: 048
     Dates: start: 20210902, end: 20210909
  10. CODEINE [Concomitant]
     Active Substance: CODEINE
     Indication: Cough
     Dosage: 20 MG, TID
     Route: 048
     Dates: start: 20210511, end: 20210829
  11. ARTEMISIA ABSINTHIUM EXTRACT [Concomitant]
     Indication: Gastritis
     Dosage: 60 MG, BID
     Route: 048
     Dates: start: 202012
  12. ARTEMISIA ABSINTHIUM EXTRACT [Concomitant]
     Dosage: 60 MG, BID
     Route: 048
     Dates: start: 20210902, end: 20210909
  13. CHLORPHENESIN [Concomitant]
     Active Substance: CHLORPHENESIN
     Indication: Osteoarthritis
     Dosage: 250 MG, BID
     Route: 048
     Dates: start: 202012
  14. CHLORPHENESIN [Concomitant]
     Active Substance: CHLORPHENESIN
     Dosage: 250 MG, BID
     Route: 048
     Dates: start: 20210902, end: 20210909
  15. HYDROCHLOROTHIAZIDE\VALSARTAN [Concomitant]
     Active Substance: HYDROCHLOROTHIAZIDE\VALSARTAN
     Indication: Hypertension
     Dosage: 1 {DF}, QD
     Route: 048
     Dates: start: 1997
  16. PHOSTEN [Concomitant]
     Indication: Hypophosphataemia
     Dosage: 20 ML
     Route: 042
     Dates: start: 20210831, end: 20210831
  17. PHOSTEN [Concomitant]
     Dosage: 20 ML
     Route: 042
     Dates: start: 20210902, end: 20210902
  18. HALOPERIDOL [Concomitant]
     Active Substance: HALOPERIDOL
     Indication: Insomnia
     Dosage: 2.5 MG
     Route: 030
     Dates: start: 20210831, end: 20210831
  19. MORPHINE HYDROCHLORIDE [Concomitant]
     Active Substance: MORPHINE HYDROCHLORIDE
     Indication: Pain
     Dosage: 5 MG, AS NEEDED
     Route: 042
     Dates: start: 20210831, end: 20210907
  20. FURTMAN [Concomitant]
     Indication: Hypophagia
     Dosage: 0.5 ML, QD
     Route: 042
     Dates: start: 20210906, end: 20210912
  21. LANSOPRAZOLE [Concomitant]
     Active Substance: LANSOPRAZOLE
     Indication: Prophylaxis
     Dosage: 15 MG, QD
     Route: 048
     Dates: start: 20210901, end: 20211026
  22. ZOLPIDEM [Concomitant]
     Active Substance: ZOLPIDEM TARTRATE
     Indication: Insomnia
     Dosage: 5 MG, AS NEEDED
     Route: 048
     Dates: start: 20210901, end: 20210907
  23. TETRACOSACTRIN [Concomitant]
     Dosage: 236 IU
     Route: 042
     Dates: start: 20210903, end: 20210903
  24. CALCIUM GLUCONATE [Concomitant]
     Active Substance: CALCIUM GLUCONATE
     Indication: Hypocalcaemia
     Dosage: 2 G
     Route: 042
     Dates: start: 20210903, end: 20210903
  25. MEGESTROL [Concomitant]
     Active Substance: MEGESTROL
     Indication: Decreased appetite
     Dosage: 625 MG, QD
     Route: 048
     Dates: start: 20210903, end: 20210912
  26. MEGESTROL [Concomitant]
     Active Substance: MEGESTROL
     Dosage: 625 MG, QD
     Route: 048
     Dates: start: 20210913
  27. ACETAMINOPHEN [Concomitant]
     Active Substance: ACETAMINOPHEN
     Indication: Pain
     Dosage: 650 MG
     Route: 048
     Dates: start: 20210904, end: 20210904
  28. URSODIOL [Concomitant]
     Active Substance: URSODIOL
     Indication: Alanine aminotransferase increased
     Dosage: 200 MG, TID
     Route: 048
     Dates: start: 20210904, end: 20210915
  29. NICARDIPINE [Concomitant]
     Active Substance: NICARDIPINE
     Indication: Hypertension
     Dosage: 2 MG
     Route: 042
     Dates: start: 20210907, end: 20210907
  30. VITAMIN B1 [Concomitant]
     Active Substance: THIAMINE HYDROCHLORIDE
     Indication: Hypophagia
     Dosage: 50 MG, QD
     Route: 042
     Dates: start: 20210908, end: 20210912
  31. COBAMAMIDE [Concomitant]
     Active Substance: COBAMAMIDE
     Indication: Hypophagia
     Dosage: 1 MG, QD
     Route: 030
     Dates: start: 20210908, end: 20210912
  32. KETOROLAC [Concomitant]
     Active Substance: KETOROLAC TROMETHAMINE
     Indication: Osteoarthritis
     Dosage: 30 MG, PRN
     Route: 042
     Dates: start: 20210908, end: 20210923
  33. OLANZAPINE [Concomitant]
     Active Substance: OLANZAPINE
     Indication: Delirium
     Dosage: 2.5 MG, QD
     Route: 048
     Dates: start: 20210909, end: 20210922
  34. TRAMADOL [Concomitant]
     Active Substance: TRAMADOL
     Indication: Pain
     Dosage: 100 MG, PRN
     Route: 042
     Dates: start: 20210908, end: 20210912
  35. AMBROXOL [Concomitant]
     Active Substance: AMBROXOL
     Indication: Prophylaxis
     Dosage: 15 MG, TID
     Route: 042
     Dates: start: 20210909, end: 20210922
  36. METRONIDAZOLE [Concomitant]
     Active Substance: METRONIDAZOLE
     Indication: Clostridium difficile infection
     Dosage: 500 MG, TID
     Route: 048
     Dates: start: 20210909, end: 20210919
  37. HERBALS [Concomitant]
     Active Substance: HERBALS
     Indication: Gastritis
     Dosage: UNK
  38. BEECOM [Concomitant]
     Dosage: 1 {DF}, QD
     Route: 048
     Dates: start: 20210914
  39. NALOXONE HYDROCHLORIDE\OXYCODONE HYDROCHLORIDE [Concomitant]
     Active Substance: NALOXONE HYDROCHLORIDE\OXYCODONE HYDROCHLORIDE
     Indication: Osteoarthritis
     Dosage: 1 {DF}, BID
     Route: 048
     Dates: start: 20210915, end: 20211013

REACTIONS (3)
  - Pyrexia [Recovered/Resolved]
  - Rash [Recovered/Resolved]
  - Asthenia [Recovered/Resolved]

NARRATIVE: CASE EVENT DATE: 20210829
